FAERS Safety Report 12347658 (Version 2)
Quarter: 2016Q2

REPORT INFORMATION
  Report Type: Spontaneous
  Country: US (occurrence: US)
  Receive Date: 20160509
  Receipt Date: 20160513
  Transmission Date: 20160815
  Serious: Yes (Other)
  Sender: FDA-Public Use
  Company Number: US-PFIZER INC-2016237322

PATIENT
  Age: 54 Year
  Sex: Male
  Weight: 72 kg

DRUGS (2)
  1. DILANTIN [Suspect]
     Active Substance: PHENYTOIN
     Indication: DRUG WITHDRAWAL CONVULSIONS
     Dosage: 100 MG, 2X/DAY (RELATIVELY LOW DOSE (2.8 MG/KG/DAY))
     Route: 048
  2. DISULFIRAM. [Interacting]
     Active Substance: DISULFIRAM
     Indication: ADJUVANT THERAPY
     Dosage: 250 MG, DAILY
     Route: 048

REACTIONS (6)
  - Toxicity to various agents [Recovering/Resolving]
  - Drug interaction [Unknown]
  - Anticoagulation drug level above therapeutic [Recovered/Resolved]
  - Ataxia [Recovering/Resolving]
  - Nystagmus [Not Recovered/Not Resolved]
  - Delirium [Recovered/Resolved]
